FAERS Safety Report 9525301 (Version 1)
Quarter: 2013Q1

REPORT INFORMATION
  Report Type: Spontaneous
  Country: US (occurrence: None)
  Receive Date: 20130314
  Receipt Date: 20130314
  Transmission Date: 20140127
  Serious: No
  Sender: FDA-Public Use
  Company Number: 1212USA000792

PATIENT
  Sex: Female

DRUGS (3)
  1. VICTRELIS ( BOCEPREVIR) CAPSULE [Suspect]
     Indication: CHRONIC HEPATITIS C
     Route: 048
     Dates: start: 20120605
  2. PEGASYS (PEGINTERFERON ALFA-2A) [Concomitant]
  3. RIBASPHERE (RIBAVIRIN) [Concomitant]

REACTIONS (2)
  - Alopecia [None]
  - Fatigue [None]
